FAERS Safety Report 23839275 (Version 2)
Quarter: 2025Q4

REPORT INFORMATION
  Report Type: Spontaneous
  Country: US (occurrence: US)
  Receive Date: 20240509
  Receipt Date: 20251111
  Transmission Date: 20260117
  Serious: No
  Sender: AMGEN
  Company Number: US-AMGEN-USASP2024089643

PATIENT
  Sex: Female

DRUGS (1)
  1. PARSABIV [Suspect]
     Active Substance: ETELCALCETIDE HYDROCHLORIDE
     Indication: Hyperparathyroidism
     Dosage: 15 MILLIGRAM, 3 TIMES/WK
     Route: 042
     Dates: start: 20230712

REACTIONS (1)
  - Therapy non-responder [Not Recovered/Not Resolved]
